FAERS Safety Report 7730709-3 (Version None)
Quarter: 2011Q3

REPORT INFORMATION
  Report Type: 
  Country: None (occurrence: None)
  Receive Date: 20110906
  Receipt Date: 20110831
  Transmission Date: 20111222
  Serious: Yes (Hospitalization)
  Sender: FDA-Public Use
  Company Number: US-GLAXOSMITHKLINE-A0943203A

PATIENT
  Age: 64 Year
  Sex: Female
  Weight: 72.6 kg

DRUGS (8)
  1. MELPHALAN [Suspect]
     Indication: AMYLOIDOSIS
     Dosage: 200MG CYCLIC
     Route: 042
  2. VELCADE [Suspect]
     Indication: AMYLOIDOSIS
     Dosage: 1MGM2 CYCLIC
     Route: 042
     Dates: start: 20110805, end: 20110815
  3. COMPAZINE [Concomitant]
  4. PROTONIX [Concomitant]
  5. LEVAQUIN [Concomitant]
  6. ACYCLOVIR [Concomitant]
  7. DEXAMETHASONE [Suspect]
     Indication: AMYLOIDOSIS
     Route: 048
  8. ATIVAN [Concomitant]

REACTIONS (1)
  - SYNCOPE [None]
